FAERS Safety Report 6438197-4 (Version None)
Quarter: 2009Q4

REPORT INFORMATION
  Report Type: 
  Country: None (occurrence: None)
  Receive Date: 20091112
  Receipt Date: 20091110
  Transmission Date: 20100525
  Serious: Yes (Other)
  Sender: FDA-Public Use
  Company Number: US-GENENTECH-293992

PATIENT
  Sex: Female

DRUGS (8)
  1. HERCEPTIN [Suspect]
     Indication: BREAST CANCER
     Dosage: UNK
     Route: 065
     Dates: start: 20090722
  2. DOCETAXEL [Suspect]
     Indication: BREAST CANCER
     Dosage: 128 MG, Q3W
     Route: 042
     Dates: start: 20090722
  3. CARBOPLATIN [Suspect]
     Indication: BREAST CANCER
     Dosage: UNK
     Route: 065
     Dates: start: 20090722
  4. DIPHENHYDRAMIN-HCL [Concomitant]
     Indication: PREMEDICATION
     Dosage: UNK
     Dates: start: 20090722
  5. RANITIDINE HYDROCHLORIDE [Concomitant]
     Indication: PREMEDICATION
     Dosage: UNK
     Dates: start: 20090722
  6. DEXAMETHASONE [Concomitant]
     Indication: PREMEDICATION
     Dosage: UNK
     Dates: start: 20090722
  7. PALONOSETRON HYDROCHLORIDE [Concomitant]
     Indication: PREMEDICATION
     Dosage: UNK
     Dates: start: 20090722
  8. APREPITANT [Concomitant]
     Indication: PREMEDICATION
     Dosage: UNK
     Dates: start: 20090722

REACTIONS (1)
  - DEAFNESS [None]
